FAERS Safety Report 5822861-1 (Version None)
Quarter: 2008Q3

REPORT INFORMATION
  Report Type: 
  Country: None (occurrence: None)
  Receive Date: 20080725
  Receipt Date: 20080715
  Transmission Date: 20090109
  Serious: Yes (Other)
  Sender: FDA-Public Use
  Company Number: US-SANOFI-SYNTHELABO-A03200802697

PATIENT
  Age: 49 Year
  Sex: Female

DRUGS (1)
  1. SUSPECTED COUNTERFEIT OF ZOLPIDEM GENERIC [Suspect]
     Indication: INSOMNIA
     Route: 048
     Dates: start: 20070101, end: 20080101

REACTIONS (6)
  - BLADDER DISORDER [None]
  - INTESTINAL FUNCTIONAL DISORDER [None]
  - MUSCULAR WEAKNESS [None]
  - NERVOUS SYSTEM DISORDER [None]
  - OPTIC NEURITIS [None]
  - PHARMACEUTICAL PRODUCT COUNTERFEIT [None]
